FAERS Safety Report 19592242 (Version 3)
Quarter: 2022Q1

REPORT INFORMATION
  Report Type: Report from Study
  Country: US (occurrence: US)
  Receive Date: 20210722
  Receipt Date: 20220101
  Transmission Date: 20220423
  Serious: Yes (Death, Other)
  Sender: FDA-Public Use
  Company Number: US-SA-2020SA165234

PATIENT
  Age: 84 Year
  Sex: Female

DRUGS (5)
  1. DUPILUMAB [Suspect]
     Active Substance: DUPILUMAB
     Indication: Dermatitis atopic
     Dosage: 600 MG, 1X
     Route: 058
     Dates: start: 20200402, end: 20200402
  2. DUPILUMAB [Suspect]
     Active Substance: DUPILUMAB
     Dosage: 300 MG, QOW
     Route: 058
     Dates: start: 202004
  3. DUPILUMAB [Suspect]
     Active Substance: DUPILUMAB
     Dosage: 300 MG/ML, QOW
     Route: 058
     Dates: start: 20200625
  4. COVID-19 VACCINE NOS [Suspect]
     Active Substance: COVID-19 VACCINE NOS
     Indication: COVID-19 immunisation
     Dosage: UNK
  5. CERAVE HEALING [Concomitant]
     Active Substance: PETROLATUM
     Indication: Skin discomfort
     Dosage: UNK
     Dates: start: 2020, end: 2020

REACTIONS (9)
  - Pneumonia [Unknown]
  - Chronic kidney disease [Unknown]
  - Inappropriate schedule of product administration [Unknown]
  - Fall [Unknown]
  - Pyrexia [Unknown]
  - Defaecation disorder [Recovering/Resolving]
  - Hospice care [Unknown]
  - Drug ineffective [Unknown]
  - Death [Fatal]

NARRATIVE: CASE EVENT DATE: 20200101
